FAERS Safety Report 8236048-9 (Version None)
Quarter: 2012Q1

REPORT INFORMATION
  Report Type: 
  Country: None (occurrence: None)
  Receive Date: 20120326
  Receipt Date: 20120315
  Transmission Date: 20120608
  Serious: Yes (Other)
  Sender: FDA-Public Use
  Company Number: US-ASTRAZENECA-2012SE12980

PATIENT
  Age: 61 Year
  Sex: Female

DRUGS (5)
  1. CALCIUM CARBONATE [Concomitant]
  2. NEXIUM [Suspect]
     Indication: HIATUS HERNIA
     Route: 048
  3. NEXIUM [Suspect]
     Indication: GASTROOESOPHAGEAL REFLUX DISEASE
     Route: 048
  4. NEXIUM [Suspect]
     Route: 048
  5. PEPSONDENT [Concomitant]

REACTIONS (7)
  - ABDOMINAL DISCOMFORT [None]
  - MALAISE [None]
  - HEADACHE [None]
  - BONE DENSITY DECREASED [None]
  - STRESS [None]
  - GASTRIC POLYPS [None]
  - ABDOMINAL PAIN UPPER [None]
